FAERS Safety Report 5851156-5 (Version None)
Quarter: 2008Q3

REPORT INFORMATION
  Report Type: 
  Country: None (occurrence: None)
  Receive Date: 20080820
  Receipt Date: 20080813
  Transmission Date: 20090109
  Serious: Yes (Other)
  Sender: FDA-Public Use
  Company Number: GB-WATSON-2008-04903

PATIENT
  Age: 51 Year
  Sex: Male

DRUGS (3)
  1. ATENOLOL [Suspect]
     Indication: HYPERTENSION
     Dosage: UNK
     Route: 065
     Dates: start: 20080101
  2. PROPRANOLOL [Suspect]
     Indication: MIGRAINE
     Dosage: UNK
     Route: 065
     Dates: start: 20080101
  3. SILDENAFIL CITRATE [Suspect]
     Indication: ERECTILE DYSFUNCTION
     Dosage: UNK
     Dates: start: 20080101

REACTIONS (3)
  - PITUITARY HAEMORRHAGE [None]
  - PITUITARY INFARCTION [None]
  - POTENTIATING DRUG INTERACTION [None]
